FAERS Safety Report 10654434 (Version 1)
Quarter: 2014Q4

REPORT INFORMATION
  Report Type: Spontaneous
  Country: US (occurrence: None)
  Receive Date: 20141215
  Receipt Date: 20141215
  Transmission Date: 20150529
  Serious: Yes (Other)
  Sender: FDA-Public Use
  Company Number: None

PATIENT
  Age: 45 Year
  Sex: Female
  Weight: 53.52 kg

DRUGS (1)
  1. CELEBREX [Suspect]
     Active Substance: CELECOXIB
     Indication: MUSCULOSKELETAL PAIN
     Dosage: 1 PILL ONCE DAILY

REACTIONS (6)
  - Pruritus generalised [None]
  - Face oedema [None]
  - Formication [None]
  - Skin exfoliation [None]
  - Urticaria [None]
  - Skin disorder [None]
